FAERS Safety Report 16883165 (Version 1)
Quarter: 2019Q4

REPORT INFORMATION
  Report Type: Spontaneous
  Country: US (occurrence: US)
  Receive Date: 20191004
  Receipt Date: 20191004
  Transmission Date: 20200122
  Serious: No
  Sender: FDA-Public Use
  Company Number: US-SA-2019SA268636

PATIENT
  Age: 80 Year
  Sex: Female

DRUGS (2)
  1. ZANTAC 150 (RANITIDINE HYDROCHLORIDE) [Suspect]
     Active Substance: RANITIDINE HYDROCHLORIDE
     Dosage: 150 MG, ONE TABLET 30 TO 60
     Route: 065
  2. ZANTAC 150 (RANITIDINE HYDROCHLORIDE) [Suspect]
     Active Substance: RANITIDINE HYDROCHLORIDE
     Dosage: REDUCED THE DOSE TO ONCE A DAY IN THE

REACTIONS (6)
  - Productive cough [Unknown]
  - Cough [Unknown]
  - Eating disorder [Unknown]
  - Oral pain [Unknown]
  - Salivary hypersecretion [Unknown]
  - Insomnia [Unknown]
